FAERS Safety Report 25009721 (Version 1)
Quarter: 2025Q1

REPORT INFORMATION
  Report Type: Spontaneous
  Country: IT (occurrence: IT)
  Receive Date: 20250225
  Receipt Date: 20250225
  Transmission Date: 20250408
  Serious: Yes (Hospitalization)
  Sender: TEVA
  Company Number: None

PATIENT
  Age: 52 Year
  Sex: Female

DRUGS (2)
  1. NAPROXEN [Suspect]
     Active Substance: NAPROXEN
     Indication: Pain
     Dosage: NAPROXENE (PA) 30CPR 500MG - 1 CP/DAY
     Route: 048
     Dates: start: 19970323, end: 19970323
  2. FELDENE [Suspect]
     Active Substance: PIROXICAM
     Indication: Arthropathy
     Route: 030
     Dates: start: 19970323, end: 19970323

REACTIONS (4)
  - Hypersensitivity [Recovered/Resolved]
  - Urticaria [Recovered/Resolved]
  - Hypotension [Recovered/Resolved]
  - Face oedema [Recovered/Resolved]

NARRATIVE: CASE EVENT DATE: 19970323
